FAERS Safety Report 6497502-3 (Version None)
Quarter: 2009Q4

REPORT INFORMATION
  Report Type: 
  Country: None (occurrence: None)
  Receive Date: 20091215
  Receipt Date: 20091209
  Transmission Date: 20100525
  Serious: Yes (Hospitalization)
  Sender: FDA-Public Use
  Company Number: US-BRISTOL-MYERS SQUIBB COMPANY-14888663

PATIENT
  Age: 53 Year
  Sex: Female
  Weight: 63 kg

DRUGS (5)
  1. ORENCIA [Suspect]
     Indication: RHEUMATOID ARTHRITIS
     Dosage: THERAPY DATES: SEP2009, NOV2009, INTERRUPTED ON UK/DEC/2009
     Route: 042
     Dates: start: 20090801, end: 20091201
  2. BUSPIRONE HCL [Suspect]
     Route: 048
     Dates: start: 20091124
  3. MOBIC [Concomitant]
  4. NEXIUM [Concomitant]
     Route: 048
  5. ALEVE (CAPLET) [Concomitant]

REACTIONS (3)
  - ANXIETY [None]
  - DRUG INEFFECTIVE [None]
  - NAUSEA [None]
